FAERS Safety Report 7549306-8 (Version None)
Quarter: 2011Q2

REPORT INFORMATION
  Report Type: 
  Country: None (occurrence: None)
  Receive Date: 20110615
  Receipt Date: 20010131
  Transmission Date: 20111010
  Serious: Yes (Hospitalization)
  Sender: FDA-Public Use
  Company Number: PHBS2001CA01385

PATIENT
  Sex: Male

DRUGS (1)
  1. EXELON [Suspect]
     Indication: DEMENTIA ALZHEIMER'S TYPE
     Dosage: 1.5 MG, BID
     Route: 048
     Dates: start: 20010103

REACTIONS (2)
  - CEREBROVASCULAR ACCIDENT [None]
  - HYPOTENSION [None]
